FAERS Safety Report 7790507-1 (Version None)
Quarter: 2011Q3

REPORT INFORMATION
  Report Type: 
  Country: None (occurrence: None)
  Receive Date: 20110930
  Receipt Date: 20110926
  Transmission Date: 20111222
  Serious: Yes (Hospitalization, Disabling, Other)
  Sender: FDA-Public Use
  Company Number: PHEH2011US05282

PATIENT
  Sex: Male

DRUGS (6)
  1. SPS [Concomitant]
     Indication: RENAL FAILURE
     Dosage: 60 UG, UNK
     Dates: start: 20110501
  2. COZAAR [Concomitant]
     Indication: HYPERTENSION
     Dosage: 25 MG, QD
     Route: 048
     Dates: start: 20101201
  3. EXJADE [Suspect]
     Indication: IRON OVERLOAD
     Dosage: 375 MG, QD
     Route: 048
     Dates: start: 20110321
  4. FOSRENOL [Concomitant]
     Indication: RENAL FAILURE
     Dosage: 500 MG, BID
     Route: 048
     Dates: start: 20101201
  5. FAMOTIDINE [Concomitant]
     Indication: RENAL FAILURE
     Dosage: 20 MG, UNK
     Route: 048
     Dates: start: 20101201
  6. DOXAZOSIN MESYLATE [Concomitant]
     Indication: RENAL FAILURE
     Dosage: 04 MG, QD
     Route: 048
     Dates: start: 20101201

REACTIONS (1)
  - SKIN ULCER [None]
